FAERS Safety Report 5115051-1 (Version None)
Quarter: 2006Q3

REPORT INFORMATION
  Report Type: 
  Country: None (occurrence: None)
  Receive Date: 20060921
  Receipt Date: 20060801
  Transmission Date: 20061208
  Serious: Yes (Hospitalization)
  Sender: FDA-Public Use
  Company Number: 2006RR-03130

PATIENT
  Age: 56 Year
  Sex: Male

DRUGS (9)
  1. AMIODARONE [Suspect]
     Dosage: 1, INTRAVENOUS
     Route: 042
  2. CLARITHROMYCIN [Suspect]
     Dosage: 1, ORAL
     Route: 048
  3. SIMVASTATIN [Suspect]
     Dosage: 1,
  4. ADENOSINE [Concomitant]
  5. AMLODIPINE [Concomitant]
  6. ASPIRIN [Concomitant]
  7. CEFTRIAXONE [Concomitant]
  8. FERROUS SULPHATE (FERROUS SULFATE) [Concomitant]
  9. LANSOPRAZOLE [Concomitant]

REACTIONS (8)
  - ASTHENIA [None]
  - DRUG INTERACTION [None]
  - LIVER FUNCTION TEST ABNORMAL [None]
  - MYALGIA [None]
  - MYOPATHY [None]
  - MYOSITIS [None]
  - PNEUMONIA [None]
  - SUPRAVENTRICULAR TACHYCARDIA [None]
